FAERS Safety Report 8386530-9 (Version None)
Quarter: 2012Q2

REPORT INFORMATION
  Report Type: 
  Country: None (occurrence: None)
  Receive Date: 20120525
  Receipt Date: 20110504
  Transmission Date: 20120825
  Serious: No
  Sender: FDA-Public Use
  Company Number: US-GLAXOSMITHKLINE-A0925785A

PATIENT
  Age: 86 Year
  Sex: Male

DRUGS (2)
  1. VERAMYST [Suspect]
     Indication: RHINITIS ALLERGIC
     Dosage: 2SPR AT NIGHT
     Route: 045
     Dates: start: 20110101
  2. SALINE [Concomitant]
     Route: 045

REACTIONS (3)
  - NASAL CONGESTION [None]
  - INCREASED UPPER AIRWAY SECRETION [None]
  - NOCTURNAL DYSPNOEA [None]
